FAERS Safety Report 13382187 (Version 6)
Quarter: 2018Q2

REPORT INFORMATION
  Report Type: Report from Study
  Country: PA (occurrence: PA)
  Receive Date: 20170329
  Receipt Date: 20180502
  Transmission Date: 20180711
  Serious: Yes (Hospitalization, Other)
  Sender: FDA-Public Use
  Company Number: PHHY2017PA045598

PATIENT
  Age: 56 Year
  Sex: Male

DRUGS (6)
  1. INSULIN [Concomitant]
     Active Substance: INSULIN NOS
     Indication: DIABETES MELLITUS
     Dosage: 20 U, QD
     Route: 065
  2. SANDOSTATIN LAR DEPOT [Suspect]
     Active Substance: OCTREOTIDE ACETATE
     Indication: ACROMEGALY
     Dosage: 20 MG, UNK
     Route: 065
     Dates: start: 201510, end: 201612
  3. SANDOSTATIN LAR DEPOT [Suspect]
     Active Substance: OCTREOTIDE ACETATE
     Indication: PITUITARY TUMOUR BENIGN
  4. DISLEP [Concomitant]
     Indication: GASTRITIS
     Route: 065
  5. ATENOLOL. [Concomitant]
     Active Substance: ATENOLOL
     Indication: HYPERTENSION
     Dosage: 0.5 DF, QD
     Route: 065
  6. INSULIN [Concomitant]
     Active Substance: INSULIN NOS
     Indication: BLOOD GLUCOSE INCREASED

REACTIONS (19)
  - Blood sodium decreased [Unknown]
  - Blood potassium decreased [Unknown]
  - Pallor [Unknown]
  - Blood glucose increased [Unknown]
  - Nausea [Recovering/Resolving]
  - Fatigue [Unknown]
  - Asthenia [Unknown]
  - Urinary tract infection [Recovered/Resolved]
  - Diarrhoea [Unknown]
  - Dizziness [Unknown]
  - Cortisol decreased [Unknown]
  - Gastrooesophageal reflux disease [Unknown]
  - Rhinorrhoea [Unknown]
  - Cough [Unknown]
  - Insomnia [Unknown]
  - Hypoaesthesia [Unknown]
  - Hypotension [Unknown]
  - Productive cough [Unknown]
  - Paraesthesia [Not Recovered/Not Resolved]
